FAERS Safety Report 14973430 (Version 1)
Quarter: 2018Q2

REPORT INFORMATION
  Report Type: Not Available
  Country: US (occurrence: US)
  Receive Date: 20180605
  Receipt Date: 20180605
  Transmission Date: 20180711
  Serious: No
  Sender: FDA-Public Use
  Company Number: US-NEUROCRINE BIOSCIENCES INC.-2018NBI01443

PATIENT
  Age: 69 Year
  Sex: Male
  Weight: 108.51 kg

DRUGS (21)
  1. INGREZZA [Suspect]
     Active Substance: VALBENAZINE
     Route: 048
     Dates: start: 20180507
  2. CYMBALTA [Concomitant]
     Active Substance: DULOXETINE HYDROCHLORIDE
  3. FLOMAX [Concomitant]
     Active Substance: TAMSULOSIN HYDROCHLORIDE
  4. INGREZZA [Suspect]
     Active Substance: VALBENAZINE
     Indication: TARDIVE DYSKINESIA
     Route: 048
     Dates: start: 20180427, end: 201805
  5. CARVEDILOL. [Concomitant]
     Active Substance: CARVEDILOL
  6. PRILOSEC [Concomitant]
     Active Substance: OMEPRAZOLE MAGNESIUM
  7. PROPRANOLOL [Concomitant]
     Active Substance: PROPRANOLOL HYDROCHLORIDE
  8. CELEBREX [Concomitant]
     Active Substance: CELECOXIB
  9. NOVOLOG [Concomitant]
     Active Substance: INSULIN ASPART
  10. PROBIOTIC [Concomitant]
     Active Substance: PROBIOTICS NOS
  11. DIAZEPAM. [Concomitant]
     Active Substance: DIAZEPAM
  12. GABAPENTIN. [Concomitant]
     Active Substance: GABAPENTIN
  13. MAGNESIUM [Concomitant]
     Active Substance: MAGNESIUM
  14. MULTIVITAMIN [Concomitant]
     Active Substance: VITAMINS
  15. PRAVASTATIN. [Concomitant]
     Active Substance: PRAVASTATIN
  16. PRIMIDONE. [Concomitant]
     Active Substance: PRIMIDONE
  17. TRAZODONE [Concomitant]
     Active Substance: TRAZODONE HYDROCHLORIDE
  18. INGREZZA [Suspect]
     Active Substance: VALBENAZINE
     Route: 048
     Dates: start: 201805, end: 201805
  19. ASPIRIN. [Concomitant]
     Active Substance: ASPIRIN
  20. LISINOPRIL. [Concomitant]
     Active Substance: LISINOPRIL
  21. SEROQUEL [Concomitant]
     Active Substance: QUETIAPINE FUMARATE

REACTIONS (1)
  - Depressed mood [Unknown]

NARRATIVE: CASE EVENT DATE: 201805
